FAERS Safety Report 4645870-7 (Version None)
Quarter: 2005Q2

REPORT INFORMATION
  Report Type: 
  Country: None (occurrence: None)
  Receive Date: 20050425
  Receipt Date: 20050412
  Transmission Date: 20051028
  Serious: Yes (Hospitalization)
  Sender: FDA-Public Use
  Company Number: HQWYE521604OCT04

PATIENT
  Age: 59 Year
  Sex: Female
  Weight: 68.1 kg

DRUGS (3)
  1. INDERAL [Suspect]
     Indication: HYPERTENSION
     Dosage: SEE IMAGE, ORAL
     Route: 048
     Dates: start: 19750101
  2. INDERAL [Suspect]
     Indication: HYPERTENSION
     Dosage: SEE IMAGE, ORAL
     Route: 048
     Dates: start: 19800101
  3. IMODIUM [Concomitant]

REACTIONS (12)
  - AMNESIA [None]
  - CERVICAL SPINAL STENOSIS [None]
  - CHEST PAIN [None]
  - DELIRIUM [None]
  - DRUG DOSE OMISSION [None]
  - DRUG WITHDRAWAL SYNDROME [None]
  - DYSPNOEA [None]
  - EXTRASYSTOLES [None]
  - FEELING ABNORMAL [None]
  - HEART RATE DECREASED [None]
  - HEART RATE INCREASED [None]
  - TRANSIENT ISCHAEMIC ATTACK [None]
